FAERS Safety Report 13712694 (Version 1)
Quarter: 2017Q3

REPORT INFORMATION
  Report Type: Spontaneous
  Country: FR (occurrence: FR)
  Receive Date: 20170703
  Receipt Date: 20170703
  Transmission Date: 20171127
  Serious: Yes (Disabling)
  Sender: FDA-Public Use
  Company Number: FR-MYLANLABS-2017M1039721

PATIENT

DRUGS (2)
  1. LETROZOLE MYLAN [Suspect]
     Active Substance: LETROZOLE
     Indication: PRODUCT USED FOR UNKNOWN INDICATION
     Dosage: UNK
     Dates: start: 201608, end: 201701
  2. TAMOXIFEN MYLAN 20 MG [Suspect]
     Active Substance: TAMOXIFEN
     Indication: PRODUCT USED FOR UNKNOWN INDICATION
     Dosage: UNK
     Dates: start: 201608, end: 201701

REACTIONS (23)
  - Asthenia [Unknown]
  - Eye pain [Unknown]
  - Palpitations [Unknown]
  - Language disorder [Unknown]
  - Musculoskeletal pain [Unknown]
  - Depression [Unknown]
  - Food aversion [Unknown]
  - Dizziness [Unknown]
  - Peripheral swelling [Unknown]
  - Abdominal distension [Unknown]
  - Insomnia [Unknown]
  - Back pain [Unknown]
  - Eyelid function disorder [Unknown]
  - Breast enlargement [Unknown]
  - Thirst decreased [Unknown]
  - Alopecia [Unknown]
  - Pain in extremity [Unknown]
  - Headache [Unknown]
  - Abdominal pain [Unknown]
  - Pelvic pain [Unknown]
  - Loss of personal independence in daily activities [Unknown]
  - Anhedonia [Unknown]
  - Amnesia [Unknown]
